FAERS Safety Report 9066833 (Version 1)
Quarter: 2013Q1

REPORT INFORMATION
  Report Type: Spontaneous
  Country: IT (occurrence: IT)
  Receive Date: 20130214
  Receipt Date: 20130214
  Transmission Date: 20140127
  Serious: Yes (Hospitalization)
  Sender: FDA-Public Use
  Company Number: IT-VIIV HEALTHCARE LIMITED-B0867140A

PATIENT
  Age: 47 None
  Sex: Male

DRUGS (11)
  1. LAMIVUDINE-HIV [Suspect]
     Indication: HIV INFECTION
     Dosage: 100MG PER DAY
     Route: 048
     Dates: start: 20120215, end: 20130101
  2. ABACAVIR [Suspect]
     Indication: HIV INFECTION
     Dosage: 300MG PER DAY
     Route: 048
     Dates: start: 20120215, end: 20130101
  3. COLCHICINA [Suspect]
     Indication: PERICARDITIS
     Dosage: .5MG PER DAY
     Route: 048
     Dates: start: 20121204, end: 20130101
  4. CYCLOSPORIN [Suspect]
     Indication: PROPHYLAXIS AGAINST TRANSPLANT REJECTION
     Dosage: 50MG PER DAY
     Route: 048
     Dates: start: 20100715, end: 20130101
  5. LASIX [Concomitant]
     Route: 065
  6. URSODEOXYCHOLIC ACID [Concomitant]
     Route: 065
  7. RANITIDINE [Concomitant]
     Route: 065
  8. BISOPROLOL [Concomitant]
     Route: 065
  9. NITRODERM [Concomitant]
     Route: 065
  10. CARDIOASPIRIN [Concomitant]
     Route: 065
  11. ALLOPURINOL [Concomitant]
     Route: 065

REACTIONS (2)
  - Rhabdomyolysis [Recovering/Resolving]
  - Myalgia [Recovering/Resolving]
